FAERS Safety Report 8278211 (Version 2)
Quarter: 2013Q4

REPORT INFORMATION
  Report Type: Report from Study
  Country: CA (occurrence: CA)
  Receive Date: 20111207
  Receipt Date: 20131212
  Transmission Date: 20140711
  Serious: Yes (Other)
  Sender: FDA-Public Use
  Company Number: PHHY2011CA105831

PATIENT
  Sex: Female

DRUGS (8)
  1. ACLASTA [Suspect]
     Indication: OSTEOPOROSIS
     Dosage: 5 MG\100 ML
     Route: 042
     Dates: start: 20090330
  2. ACLASTA [Suspect]
     Dosage: 5 MG \100 ML
     Route: 042
     Dates: start: 20100218
  3. ACLASTA [Suspect]
     Dosage: 5 MG\100 ML
     Route: 042
     Dates: start: 20110131
  4. ACLASTA [Suspect]
     Dosage: 5 MG\100 ML
     Route: 042
     Dates: start: 20120118
  5. ACLASTA [Suspect]
     Dosage: 5 MG\100 ML
     Route: 042
     Dates: start: 20130108
  6. NAPROXEN [Concomitant]
     Dosage: 250 MG, BID
  7. DIAZEPAM [Concomitant]
     Dosage: 10 MG, QD
  8. CYANOCOBALAMIN [Concomitant]
     Dosage: 1000 UG, UNK
     Route: 030

REACTIONS (6)
  - Parkinson^s disease [Not Recovered/Not Resolved]
  - Dystonia [Not Recovered/Not Resolved]
  - Poor venous access [Unknown]
  - Muscle spasms [Not Recovered/Not Resolved]
  - Infusion site haemorrhage [Unknown]
  - Infusion site pain [Unknown]
